FAERS Safety Report 6159589-7 (Version None)
Quarter: 2009Q2

REPORT INFORMATION
  Report Type: 
  Country: None (occurrence: None)
  Receive Date: 20090420
  Receipt Date: 20090413
  Transmission Date: 20091009
  Serious: Yes (Hospitalization, Disabling)
  Sender: FDA-Public Use
  Company Number: US-B.I. PHARMACEUTICALS,INC./RIDGEFIELD-2009-BP-04639BP

PATIENT
  Sex: Male

DRUGS (3)
  1. SPIRIVA [Suspect]
     Indication: EMPHYSEMA
     Dosage: 18MCG
     Route: 055
     Dates: start: 20060101
  2. ADVAIR HFA [Concomitant]
     Indication: EMPHYSEMA
  3. TRIAMTERENE [Concomitant]
     Indication: EMPHYSEMA

REACTIONS (5)
  - AMNESIA [None]
  - CONCUSSION [None]
  - HAEMORRHAGE INTRACRANIAL [None]
  - PROSTATIC DISORDER [None]
  - SYNCOPE [None]
